FAERS Safety Report 24233737 (Version 1)
Quarter: 2024Q3

REPORT INFORMATION
  Report Type: Spontaneous
  Country: US (occurrence: None)
  Receive Date: 20240820
  Receipt Date: 20240820
  Transmission Date: 20241017
  Serious: Yes (Other)
  Sender: Public
  Company Number: None

PATIENT
  Age: 43 Year
  Sex: Female
  Weight: 69.8 kg

DRUGS (11)
  1. EMGALITY [Suspect]
     Active Substance: GALCANEZUMAB-GNLM
     Indication: Migraine
     Dosage: FREQUENCY : MONTHLY;?
     Route: 058
     Dates: start: 20230927, end: 20240820
  2. COUMADIN [Concomitant]
     Active Substance: WARFARIN SODIUM
  3. TOPIRAMATE [Concomitant]
  4. ZOLPIDEM [Concomitant]
     Active Substance: ZOLPIDEM TARTRATE
  5. ELETRIPTAN [Concomitant]
     Active Substance: ELETRIPTAN
  6. CHOLECALCIFEROL [Concomitant]
     Active Substance: CHOLECALCIFEROL
  7. ALPRAZOLAM [Concomitant]
     Active Substance: ALPRAZOLAM
  8. acetaminophen ? hydrocodone [Concomitant]
  9. VITAMINS [Concomitant]
     Active Substance: VITAMINS
  10. OMEGA-3 ACIDS [Concomitant]
     Active Substance: OMEGA-3 FATTY ACIDS
  11. WARFARIN [Concomitant]
     Active Substance: WARFARIN

REACTIONS (4)
  - Peripheral swelling [None]
  - Arthralgia [None]
  - Angioedema [None]
  - Petechiae [None]

NARRATIVE: CASE EVENT DATE: 20240817
